FAERS Safety Report 8771576 (Version 8)
Quarter: 2015Q3

REPORT INFORMATION
  Report Type: Spontaneous
  Country: US (occurrence: US)
  Receive Date: 20120905
  Receipt Date: 20150819
  Transmission Date: 20151125
  Serious: Yes (Hospitalization, Disabling, Other)
  Sender: FDA-Public Use
  Company Number: US-009507513-1208USA012607

PATIENT
  Sex: Male
  Weight: 91.16 kg

DRUGS (4)
  1. FINASTERIDE. [Suspect]
     Active Substance: FINASTERIDE
     Indication: ANDROGENETIC ALOPECIA
     Dosage: 1.25MG QD (1/4 OF 5MG TAB)
     Route: 048
     Dates: start: 20100607, end: 201201
  2. PROPECIA [Suspect]
     Active Substance: FINASTERIDE
     Indication: ANDROGENETIC ALOPECIA
     Dosage: 1 MG, QD
     Route: 048
     Dates: start: 20061229, end: 201201
  3. PROSCAR [Suspect]
     Active Substance: FINASTERIDE
     Indication: ANDROGENETIC ALOPECIA
     Dosage: 1.25MG (1/4 OF 5 MG TAB), QD
     Route: 048
  4. FINASTERIDE. [Suspect]
     Active Substance: FINASTERIDE
     Dosage: 5 MG, UNK
     Route: 048
     Dates: start: 20120215

REACTIONS (56)
  - Cognitive disorder [Not Recovered/Not Resolved]
  - Loss of consciousness [Unknown]
  - Wrong technique in product usage process [Unknown]
  - Rectal haemorrhage [Unknown]
  - Blood albumin increased [Unknown]
  - Groin pain [Unknown]
  - Disturbance in attention [Unknown]
  - Sexual dysfunction [Not Recovered/Not Resolved]
  - Musculoskeletal stiffness [Unknown]
  - Paraesthesia [Unknown]
  - Hypothyroidism [Unknown]
  - Anal pruritus [Unknown]
  - Abnormal faeces [Unknown]
  - Hyperlipidaemia [Unknown]
  - Feeling abnormal [Unknown]
  - Memory impairment [Unknown]
  - Hordeolum [Recovering/Resolving]
  - Testicular pain [Unknown]
  - Generalised tonic-clonic seizure [Unknown]
  - Anxiety [Not Recovered/Not Resolved]
  - Pain [Unknown]
  - Headache [Unknown]
  - Abdominal discomfort [Unknown]
  - Activities of daily living impaired [Unknown]
  - Asthenia [Unknown]
  - Infection [Unknown]
  - Aspartate aminotransferase increased [Unknown]
  - Sinus operation [Unknown]
  - Depression [Not Recovered/Not Resolved]
  - Sinus operation [Unknown]
  - Anal pruritus [Unknown]
  - Somatisation disorder [Unknown]
  - Dry skin [Unknown]
  - Epigastric discomfort [Unknown]
  - Flank pain [Unknown]
  - Eczema [Unknown]
  - Scoliosis [Unknown]
  - Hand fracture [Unknown]
  - Encephalitis [Unknown]
  - Haematochezia [Unknown]
  - Nausea [Unknown]
  - Cerebral disorder [Unknown]
  - Renal pain [Unknown]
  - Molluscum contagiosum [Recovered/Resolved]
  - Male orgasmic disorder [Unknown]
  - Alopecia areata [Unknown]
  - Dermatitis [Unknown]
  - Drug administration error [Unknown]
  - Dizziness [Unknown]
  - Constipation [Unknown]
  - Prostatitis [Unknown]
  - Flank pain [Unknown]
  - Skin papilloma [Unknown]
  - Sexual dysfunction [Unknown]
  - Libido decreased [Unknown]
  - Erectile dysfunction [Unknown]

NARRATIVE: CASE EVENT DATE: 2008
